FAERS Safety Report 18451929 (Version 2)
Quarter: 2021Q1

REPORT INFORMATION
  Report Type: Spontaneous
  Country: JP (occurrence: JP)
  Receive Date: 20201102
  Receipt Date: 20210114
  Transmission Date: 20210419
  Serious: Yes (Hospitalization)
  Sender: FDA-Public Use
  Company Number: JP-ELI_LILLY_AND_COMPANY-JP202010009820

PATIENT
  Age: 79 Year
  Sex: Male
  Weight: 58 kg

DRUGS (3)
  1. HUMALOG [Suspect]
     Active Substance: INSULIN LISPRO
     Indication: TYPE 2 DIABETES MELLITUS
     Dosage: 22.5 INTERNATIONAL UNIT, DAILY
     Route: 058
     Dates: start: 20060621
  2. INSULIN GLARGINE [Suspect]
     Active Substance: INSULIN GLARGINE
     Indication: TYPE 2 DIABETES MELLITUS
     Dosage: 13 INTERNATIONAL UNIT
     Route: 058
     Dates: start: 20180219
  3. APLEWAY [Suspect]
     Active Substance: TOFOGLIFLOZIN
     Indication: TYPE 2 DIABETES MELLITUS
     Dosage: 20 MG, DAILY
     Route: 048
     Dates: start: 20181119, end: 20190412

REACTIONS (2)
  - Diabetic ketoacidosis [Recovered/Resolved]
  - Cutaneous amyloidosis [Unknown]

NARRATIVE: CASE EVENT DATE: 20190412
